FAERS Safety Report 15565337 (Version 2)
Quarter: 2018Q4

REPORT INFORMATION
  Report Type: Report from Study
  Country: IT (occurrence: IT)
  Receive Date: 20181030
  Receipt Date: 20181113
  Transmission Date: 20190205
  Serious: Yes (Disabling, Other)
  Sender: FDA-Public Use
  Company Number: PHHY2018IT140514

PATIENT
  Age: 47 Year
  Sex: Male

DRUGS (1)
  1. GILENYA [Suspect]
     Active Substance: FINGOLIMOD HYDROCHLORIDE
     Indication: MULTIPLE SCLEROSIS
     Dosage: 0.5 MG, QD
     Route: 065
     Dates: start: 20130410

REACTIONS (3)
  - Lower limb fracture [Recovered/Resolved with Sequelae]
  - Accident [Unknown]
  - Fatigue [Unknown]

NARRATIVE: CASE EVENT DATE: 201804
